FAERS Safety Report 5390611-1 (Version None)
Quarter: 2007Q3

REPORT INFORMATION
  Report Type: 
  Country: None (occurrence: None)
  Receive Date: 20070718
  Receipt Date: 20070711
  Transmission Date: 20080115
  Serious: Yes (Other)
  Sender: FDA-Public Use
  Company Number: JP-PFIZER INC-2007057237

PATIENT
  Sex: Female

DRUGS (4)
  1. ZYRTEC [Suspect]
     Indication: RHINITIS ALLERGIC
     Dosage: DAILY DOSE:10MG
     Route: 048
     Dates: start: 20070528, end: 20070101
  2. ZOLMITRIPTAN [Concomitant]
     Dosage: DAILY DOSE:25MG
     Route: 048
  3. ZOLPIDEM TARTRATE [Concomitant]
     Dosage: DAILY DOSE:10MG
     Route: 048
  4. DOMIPHEN BROMIDE [Concomitant]
     Dosage: DAILY DOSE:.5MG
     Route: 048

REACTIONS (1)
  - ELECTROCARDIOGRAM QT PROLONGED [None]
